FAERS Safety Report 8841592 (Version 1)
Quarter: 2012Q4

REPORT INFORMATION
  Report Type: 
  Country: US (occurrence: US)
  Receive Date: 20121016
  Receipt Date: 20121016
  Transmission Date: 20130627
  Serious: No
  Sender: FDA-Public Use
  Company Number: US-BIOGENIDEC-2012BI044347

PATIENT
  Sex: Female

DRUGS (1)
  1. AVONEX [Suspect]
     Indication: MULTIPLE SCLEROSIS
     Route: 030
     Dates: start: 20120907

REACTIONS (6)
  - Urine abnormality [Unknown]
  - Dysgeusia [Unknown]
  - General symptom [Unknown]
  - Dysstasia [Unknown]
  - Malaise [Unknown]
  - Influenza like illness [Unknown]
